FAERS Safety Report 7764793-8 (Version None)
Quarter: 2011Q3

REPORT INFORMATION
  Report Type: 
  Country: None (occurrence: None)
  Receive Date: 20110921
  Receipt Date: 20110921
  Transmission Date: 20111222
  Serious: Yes (Life-Threatening, Hospitalization)
  Sender: FDA-Public Use
  Company Number: None

PATIENT
  Age: 79 Year
  Sex: Female
  Weight: 79.378 kg

DRUGS (2)
  1. DILANTIN [Suspect]
     Indication: CONVULSION
     Dosage: ORIGINAL DOSE 2 TABS
     Route: 048
     Dates: start: 20110710, end: 20110911
  2. COUMADIN [Concomitant]

REACTIONS (10)
  - SWELLING FACE [None]
  - PULMONARY THROMBOSIS [None]
  - LOCAL SWELLING [None]
  - OEDEMA PERIPHERAL [None]
  - DRUG INTERACTION [None]
  - RASH [None]
  - ANAPHYLACTIC REACTION [None]
  - BLOOD GLUCOSE DECREASED [None]
  - PRURITUS [None]
  - SWELLING [None]
